FAERS Safety Report 7198591-3 (Version None)
Quarter: 2010Q4

REPORT INFORMATION
  Report Type: 
  Country: None (occurrence: None)
  Receive Date: 20101227
  Receipt Date: 20101213
  Transmission Date: 20110411
  Serious: Yes (Hospitalization)
  Sender: FDA-Public Use
  Company Number: US-ELI_LILLY_AND_COMPANY-US201012003364

PATIENT
  Sex: Male
  Weight: 68.6 kg

DRUGS (15)
  1. CIXUTUMUMAB [Suspect]
     Indication: NON-SMALL CELL LUNG CANCER
     Dosage: 6 MG/KG, OTHER
     Route: 042
     Dates: start: 20101025
  2. CETUXIMAB [Suspect]
     Indication: NON-SMALL CELL LUNG CANCER
     Dosage: 400 MG/M2, UNK
     Route: 042
     Dates: start: 20101025, end: 20101025
  3. CETUXIMAB [Suspect]
     Dosage: 250 MG/M2, OTHER
     Route: 042
     Dates: start: 20101101
  4. GEMCITABINE HCL [Suspect]
     Indication: NON-SMALL CELL LUNG CANCER
     Dosage: 1000 MG/M2, OTHER
     Route: 042
     Dates: start: 20101025
  5. CISPLATIN [Suspect]
     Indication: NON-SMALL CELL LUNG CANCER
     Dosage: 75 MG/M2, OTHER
     Route: 042
     Dates: start: 20101025
  6. VYTORIN [Concomitant]
     Dosage: 1 D/F, DAILY (1/D)
     Route: 048
  7. NEXIUM [Concomitant]
     Dosage: 40 MG, DAILY (1/D)
     Route: 048
  8. BACLOFEN [Concomitant]
     Indication: HICCUPS
     Dosage: 10 MG, AS NEEDED
     Route: 048
  9. CARDIZEM [Concomitant]
     Dosage: 240 MG, DAILY (1/D)
     Route: 048
  10. ASPIRIN [Concomitant]
     Dosage: 325 MG, AS NEEDED
     Route: 048
  11. AMBIEN [Concomitant]
     Indication: INSOMNIA
     Dosage: 10 MG, EACH EVENING
     Route: 048
  12. DECADRON [Concomitant]
     Dosage: 4 MG, OTHER
     Route: 048
  13. ACLOVATE [Concomitant]
     Indication: RASH
     Dosage: UNK, 2/D
     Route: 061
  14. DOXYCYCLINE [Concomitant]
     Indication: RASH
     Dosage: 100 MG, 2/D
     Route: 048
  15. EMEND [Concomitant]
     Dosage: 80 MG, 2/D
     Route: 048

REACTIONS (1)
  - DEHYDRATION [None]
